FAERS Safety Report 9650821 (Version 1)
Quarter: 2013Q4

REPORT INFORMATION
  Report Type: Spontaneous
  Country: US (occurrence: US)
  Receive Date: 20131029
  Receipt Date: 20131029
  Transmission Date: 20140711
  Serious: No
  Sender: FDA-Public Use
  Company Number: US-JNJFOC-20131009749

PATIENT
  Sex: Female
  Weight: 73.94 kg

DRUGS (12)
  1. DURAGESIC [Suspect]
     Indication: PAIN
     Route: 062
     Dates: start: 201211
  2. ENDOCET [Concomitant]
     Indication: PAIN
     Dosage: 10/325MG/TABLET/10/325MG/??ONE TABLET EVERY FOUR HOURS??PRN/ORAL
     Route: 048
     Dates: start: 2006
  3. ULTRAM [Concomitant]
     Indication: PAIN
     Route: 048
     Dates: start: 2006
  4. LYRICA [Concomitant]
     Indication: PAIN
     Route: 048
     Dates: start: 2006
  5. LIDOCAINE [Concomitant]
     Indication: PAIN
     Route: 030
     Dates: start: 2007
  6. LIDODERM [Concomitant]
     Indication: PAIN
     Route: 062
     Dates: start: 2008
  7. METHADONE [Concomitant]
     Indication: PAIN
     Route: 048
     Dates: start: 201201
  8. PANRETIN [Concomitant]
     Indication: RADIATION SKIN INJURY
     Route: 067
     Dates: start: 201203
  9. PREDNISONE [Concomitant]
     Indication: RHEUMATOID ARTHRITIS
     Route: 048
     Dates: start: 201203
  10. FOLIC ACID [Concomitant]
     Indication: RHEUMATOID ARTHRITIS
     Route: 048
     Dates: start: 201307
  11. METHOTREXATE [Concomitant]
     Indication: RHEUMATOID ARTHRITIS
     Route: 048
     Dates: start: 201307
  12. AMBIEN [Concomitant]
     Indication: SLEEP DISORDER
     Route: 048
     Dates: start: 2006

REACTIONS (6)
  - Drug dose omission [Recovered/Resolved]
  - Product quality issue [Recovered/Resolved]
  - Product quality issue [Unknown]
  - Product quality issue [Unknown]
  - Product quality issue [Unknown]
  - Wrong technique in drug usage process [Unknown]
